FAERS Safety Report 9244759 (Version 2)
Quarter: 2014Q1

REPORT INFORMATION
  Report Type: Spontaneous
  Country: US (occurrence: US)
  Receive Date: 20130422
  Receipt Date: 20140110
  Transmission Date: 20141002
  Serious: Yes (Other)
  Sender: FDA-Public Use
  Company Number: US-JNJFOC-20130408473

PATIENT
  Sex: 0

DRUGS (3)
  1. REMICADE [Suspect]
     Indication: BIRDSHOT CHORIORETINOPATHY
     Dosage: 4 TO 5MG/KG AT 0,2 AND 6 WEEKS FOLLOWED BY A MAINTENANCE DOSE AT INTERVAL OF 4 TO 8 WEEKS
     Route: 042
  2. IMMUNOMODULATORS [Concomitant]
     Route: 065
  3. PREDNISONE [Concomitant]
     Route: 065

REACTIONS (4)
  - Lupus-like syndrome [Recovered/Resolved]
  - Eye inflammation [Recovered/Resolved]
  - Hypersensitivity [Unknown]
  - Off label use [Unknown]
